FAERS Safety Report 4947178-9 (Version None)
Quarter: 2006Q1

REPORT INFORMATION
  Report Type: 
  Country: None (occurrence: None)
  Receive Date: 20060113
  Receipt Date: 20051017
  Transmission Date: 20060701
  Serious: No
  Sender: FDA-Public Use
  Company Number: 2005SP003540

PATIENT
  Age: 61 Year
  Sex: Male
  Weight: 95.2554 kg

DRUGS (3)
  1. LUNESTA [Suspect]
     Indication: INSOMNIA
     Dosage: 3 MG; HS; ORAL
     Route: 048
     Dates: start: 20050924, end: 20050927
  2. LIPITOR [Concomitant]
  3. AVADEN [Concomitant]

REACTIONS (1)
  - SOMNOLENCE [None]
